FAERS Safety Report 8024095-1 (Version None)
Quarter: 2012Q1

REPORT INFORMATION
  Report Type: 
  Country: None (occurrence: None)
  Receive Date: 20120103
  Receipt Date: 20111219
  Transmission Date: 20120608
  Serious: Yes (Death)
  Sender: FDA-Public Use
  Company Number: CL-367-2011

PATIENT
  Age: 24 Year
  Sex: Male

DRUGS (6)
  1. PAROXETINE [Suspect]
     Dosage: UNK UNK ORAL
     Route: 048
  2. CHLORPROMAZINE HYDROCHLORIDE [Suspect]
     Dosage: UNK UNK ORAL
     Route: 048
  3. CITALOPRAM HYDROBROMIDE [Suspect]
     Dosage: UNK UNK ORAL
     Route: 048
  4. NORTRIPTYLINE HCL [Suspect]
     Dosage: UNK UNK ORAL
     Route: 048
  5. METRONIDAZOLE [Suspect]
     Indication: PRODUCT USED FOR UNKNOWN INDICATION
     Dosage: UNK UNK ORAL
     Route: 048
  6. ATROPINE SULFATE, DIPHENOXYLATE HCL UNK [Suspect]
     Indication: PRODUCT USED FOR UNKNOWN INDICATION
     Dosage: UNK UNK ORAL
     Route: 048

REACTIONS (2)
  - TOXICITY TO VARIOUS AGENTS [None]
  - COMPLETED SUICIDE [None]
